FAERS Safety Report 10141069 (Version 2)
Quarter: 2015Q1

REPORT INFORMATION
  Report Type: Other
  Country: US (occurrence: US)
  Receive Date: 20140429
  Receipt Date: 20150224
  Transmission Date: 20150720
  Serious: Yes (Other)
  Sender: FDA-Public Use
  Company Number: US-GSKPPD-2014GSK042020

PATIENT
  Age: 59 Year
  Sex: Female

DRUGS (7)
  1. AVANDAMET [Suspect]
     Active Substance: METFORMIN HYDROCHLORIDE\ROSIGLITAZONE MALEATE
     Indication: DIABETES MELLITUS
     Dosage: DATES OF AVANDAMET USE COULD NOT BE CONFIRMED IN RECORDS REVIEWED
  2. ASPIRIN. [Concomitant]
     Active Substance: ASPIRIN
     Dates: start: 20071017
  3. FUROSEMIDE. [Concomitant]
     Active Substance: FUROSEMIDE
     Route: 048
  4. AVANDIA [Suspect]
     Active Substance: ROSIGLITAZONE MALEATE
     Indication: DIABETES MELLITUS
     Dosage: DATES OF AVANDIA USE COULD NOT BE CONFIRMED IN RECORDS REVIEWED
     Route: 048
  5. NIFEDIPINE. [Concomitant]
     Active Substance: NIFEDIPINE
     Route: 048
     Dates: start: 20071017
  6. IMDUR [Concomitant]
     Active Substance: ISOSORBIDE MONONITRATE
     Route: 048
  7. CLOPIDOGREL [Concomitant]
     Active Substance: CLOPIDOGREL BISULFATE
     Route: 048
     Dates: start: 20071017

REACTIONS (3)
  - Cardiac failure congestive [Unknown]
  - Coronary arterial stent insertion [Recovered/Resolved]
  - Angina pectoris [Unknown]

NARRATIVE: CASE EVENT DATE: 200707
